FAERS Safety Report 4389353-0 (Version None)
Quarter: 2004Q2

REPORT INFORMATION
  Report Type: 
  Country: None (occurrence: None)
  Receive Date: 20040628
  Receipt Date: 20040616
  Transmission Date: 20050107
  Serious: Yes (Hospitalization, Other)
  Sender: FDA-Public Use
  Company Number: JP-JNJFOC-20040104961

PATIENT
  Age: 70 Year
  Sex: Male

DRUGS (9)
  1. FENTANYL [Suspect]
     Indication: CANCER PAIN
     Dosage: SEE IMAGE
     Route: 062
     Dates: start: 20031218, end: 20040121
  2. FENTANYL [Suspect]
     Indication: CANCER PAIN
     Dosage: SEE IMAGE
     Route: 062
     Dates: end: 20040604
  3. FENTANYL [Suspect]
     Indication: CANCER PAIN
     Dosage: SEE IMAGE
     Route: 062
     Dates: start: 20040121
  4. FENTANYL [Suspect]
     Indication: CANCER PAIN
     Dosage: SEE IMAGE
     Route: 062
     Dates: start: 20040607
  5. ROXATIDINE ACETATE HCL [Concomitant]
  6. LACTOBACILLUS CASEI (LACTOBACILLUS ACIDOPHILUS) [Concomitant]
  7. MAGNESIUM OXIDE (MAGNESIUM OXIDE) [Concomitant]
  8. ZOPICLONE (ZOPICLONE) [Concomitant]
  9. SODIUM PICOSULFATE (SODIUM PICOSULFATE) [Concomitant]

REACTIONS (5)
  - ABDOMINAL DISTENSION [None]
  - ANOREXIA [None]
  - ILEUS [None]
  - SICK SINUS SYNDROME [None]
  - SUBILEUS [None]
